FAERS Safety Report 4390449-8 (Version None)
Quarter: 2004Q2

REPORT INFORMATION
  Report Type: 
  Country: None (occurrence: None)
  Receive Date: 20040630
  Receipt Date: 20040614
  Transmission Date: 20050107
  Serious: Yes (Hospitalization, Other)
  Sender: FDA-Public Use
  Company Number: US-JNJFOC-20040200914

PATIENT
  Age: 57 Year
  Sex: Female
  Weight: 59.6026 kg

DRUGS (15)
  1. REMICADE [Suspect]
     Indication: RHEUMATOID ARTHRITIS
     Dosage: INTRAVENOUS
     Route: 042
     Dates: start: 20020101
  2. REMICADE [Suspect]
     Indication: RHEUMATOID ARTHRITIS
     Dosage: INTRAVENOUS
     Route: 042
     Dates: start: 20030605
  3. REMICADE [Suspect]
     Indication: RHEUMATOID ARTHRITIS
     Dosage: INTRAVENOUS
     Route: 042
     Dates: start: 20030721
  4. CEPHALEXIN [Concomitant]
  5. COUMADIN [Concomitant]
  6. DIAZIDE (GLICLAZIDE) [Concomitant]
  7. SYNTHROID [Concomitant]
  8. POTASSIUM CHLORIDE [Concomitant]
  9. MENOCYCLINE (MINOCYCLINE) [Concomitant]
  10. KEFLEX [Concomitant]
  11. PLAQUENIL [Concomitant]
  12. PREVACID [Concomitant]
  13. DIFLUCAN [Concomitant]
  14. PREDNISONE TAB [Concomitant]
  15. BEXTRA [Concomitant]

REACTIONS (24)
  - ARTHRITIS BACTERIAL [None]
  - ASTHENIA [None]
  - BLOOD THYROID STIMULATING HORMONE DECREASED [None]
  - DYSPNOEA [None]
  - FATIGUE [None]
  - GENERALISED OEDEMA [None]
  - HYPONATRAEMIA [None]
  - INSOMNIA [None]
  - JOINT SWELLING [None]
  - LOWER LIMB DEFORMITY [None]
  - MEDICAL DEVICE COMPLICATION [None]
  - MIGRATION OF IMPLANT [None]
  - NASAL CONGESTION [None]
  - NAUSEA [None]
  - OEDEMA PERIPHERAL [None]
  - POLLAKIURIA [None]
  - POSTOPERATIVE INFECTION [None]
  - POSTOPERATIVE THROMBOSIS [None]
  - RED BLOOD CELL SEDIMENTATION RATE INCREASED [None]
  - SKIN DISCOLOURATION [None]
  - SYNOVITIS [None]
  - VOMITING [None]
  - WALKING AID USER [None]
  - WEIGHT DECREASED [None]
